FAERS Safety Report 6256829-0 (Version None)
Quarter: 2009Q3

REPORT INFORMATION
  Report Type: 
  Country: None (occurrence: None)
  Receive Date: 20090706
  Receipt Date: 20090624
  Transmission Date: 20100115
  Serious: Yes (Other)
  Sender: FDA-Public Use
  Company Number: PHEH2009US06603

PATIENT
  Sex: Female

DRUGS (5)
  1. RECLAST [Suspect]
     Dosage: UNK, ONCE/SINGLE USE
     Dates: start: 20080401
  2. CRESTOR [Concomitant]
     Dosage: 5 MG, UNK
  3. PRILOSEC [Concomitant]
     Dosage: 20 MG, UNK
  4. CALCIUM W/VITAMIN D NOS [Concomitant]
     Dosage: UNK, UNK
  5. ASPIRIN [Concomitant]
     Dosage: 81 MG, UNK

REACTIONS (4)
  - ANAEMIA [None]
  - INFLUENZA LIKE ILLNESS [None]
  - PERIPHERAL VASCULAR DISORDER [None]
  - WHITE BLOOD CELL COUNT DECREASED [None]
